FAERS Safety Report 11849107 (Version 1)
Quarter: 2015Q4

REPORT INFORMATION
  Report Type: Spontaneous
  Country: US (occurrence: US)
  Receive Date: 20151218
  Receipt Date: 20151218
  Transmission Date: 20160305
  Serious: Yes (Hospitalization)
  Sender: FDA-Public Use
  Company Number: US-BEH-2015056791

PATIENT
  Age: 79 Year
  Sex: Female
  Weight: 47 kg

DRUGS (30)
  1. HIZENTRA [Suspect]
     Active Substance: HUMAN IMMUNOGLOBULIN G
     Indication: IMMUNODEFICIENCY COMMON VARIABLE
     Route: 058
  2. BUPROPION. [Concomitant]
     Active Substance: BUPROPION
  3. VITAMIN C [Concomitant]
     Active Substance: ASCORBIC ACID
  4. SELENIUM [Concomitant]
     Active Substance: SELENIUM
  5. IBUPROFEN. [Concomitant]
     Active Substance: IBUPROFEN
  6. XOPENEX [Concomitant]
     Active Substance: LEVALBUTEROL HYDROCHLORIDE
  7. GABAPENTIN. [Concomitant]
     Active Substance: GABAPENTIN
  8. LIPOIC [Concomitant]
  9. FISH OIL [Concomitant]
     Active Substance: FISH OIL
  10. ACETYLCYSTEINE. [Concomitant]
     Active Substance: ACETYLCYSTEINE
  11. DIPHENHYDRAMINE. [Concomitant]
     Active Substance: DIPHENHYDRAMINE
  12. MULTIVITAMIN [Concomitant]
     Active Substance: VITAMINS
  13. SPIRIVA [Concomitant]
     Active Substance: TIOTROPIUM BROMIDE MONOHYDRATE
  14. ROPINIROLE. [Concomitant]
     Active Substance: ROPINIROLE
  15. ZINC [Concomitant]
     Active Substance: ZINC\ZINC CHLORIDE
  16. OXYGEN. [Concomitant]
     Active Substance: OXYGEN
  17. ENZYMES [Concomitant]
  18. CLONAZEPAM. [Concomitant]
     Active Substance: CLONAZEPAM
  19. CALCIUM [Concomitant]
     Active Substance: CALCIUM
  20. ASTELIN [Concomitant]
     Active Substance: AZELASTINE HYDROCHLORIDE
  21. ZYRTEC [Concomitant]
     Active Substance: CETIRIZINE HYDROCHLORIDE
  22. PRILOSEC [Concomitant]
     Active Substance: OMEPRAZOLE MAGNESIUM
  23. BUFFERIN [Concomitant]
     Active Substance: ASPIRIN
  24. HIZENTRA [Suspect]
     Active Substance: HUMAN IMMUNOGLOBULIN G
     Route: 058
  25. FLONASE [Concomitant]
     Active Substance: FLUTICASONE PROPIONATE
  26. MUCINEX [Concomitant]
     Active Substance: GUAIFENESIN
  27. PREDNISONE. [Concomitant]
     Active Substance: PREDNISONE
  28. EPIPEN [Concomitant]
     Active Substance: EPINEPHRINE
  29. PRESERVISION [Concomitant]
     Active Substance: MINERALS\VITAMINS
  30. TUSSIN [Concomitant]
     Active Substance: GUAIFENESIN

REACTIONS (1)
  - Chronic obstructive pulmonary disease [Unknown]

NARRATIVE: CASE EVENT DATE: 20151112
